FAERS Safety Report 12315363 (Version 1)
Quarter: 2016Q2

REPORT INFORMATION
  Report Type: Spontaneous
  Country: US (occurrence: US)
  Receive Date: 20160428
  Receipt Date: 20160428
  Transmission Date: 20160815
  Serious: Yes (Other)
  Sender: FDA-Public Use
  Company Number: US-BAYER-2016-077964

PATIENT
  Age: 92 Year
  Sex: Male
  Weight: 68.93 kg

DRUGS (7)
  1. AMLODIPINE BESYLATE. [Concomitant]
     Active Substance: AMLODIPINE BESYLATE
  2. RANITIDINE. [Concomitant]
     Active Substance: RANITIDINE
  3. BAYER GENUINE ASPIRIN [Suspect]
     Active Substance: ASPIRIN
     Dosage: 2 DF,
  4. LOSARTAN. [Concomitant]
     Active Substance: LOSARTAN
  5. BAYER GENUINE ASPIRIN [Suspect]
     Active Substance: ASPIRIN
     Dosage: 1 DF, QD
     Route: 048
     Dates: start: 1995
  6. HYDROCHLOROTHIAZIDE. [Concomitant]
     Active Substance: HYDROCHLOROTHIAZIDE
  7. SIMVASTATIN. [Concomitant]
     Active Substance: SIMVASTATIN

REACTIONS (5)
  - Small intestinal haemorrhage [Recovered/Resolved]
  - Overdose [Recovered/Resolved]
  - Product use issue [None]
  - Haemorrhagic anaemia [Recovered/Resolved]
  - Off label use [Not Recovered/Not Resolved]
